FAERS Safety Report 12375215 (Version 1)
Quarter: 2016Q2

REPORT INFORMATION
  Report Type: Spontaneous
  Country: US (occurrence: US)
  Receive Date: 20160517
  Receipt Date: 20160517
  Transmission Date: 20160815
  Serious: No
  Sender: FDA-Public Use
  Company Number: US-AMGEN-USASP2016057888

PATIENT
  Sex: Female

DRUGS (1)
  1. ENBREL [Suspect]
     Active Substance: ETANERCEPT
     Indication: RHEUMATOID ARTHRITIS
     Dosage: 50 MG, QWK
     Route: 065
     Dates: start: 2016

REACTIONS (6)
  - Arthralgia [Unknown]
  - Pain [Unknown]
  - Injection site discomfort [Unknown]
  - Pain in extremity [Unknown]
  - Gait disturbance [Unknown]
  - Swelling [Unknown]

NARRATIVE: CASE EVENT DATE: 2016
